FAERS Safety Report 9390190 (Version 1)
Quarter: 2013Q3

REPORT INFORMATION
  Report Type: Spontaneous
  Country: US (occurrence: US)
  Receive Date: 20130708
  Receipt Date: 20130708
  Transmission Date: 20140515
  Serious: No
  Sender: FDA-Public Use
  Company Number: US-AMGEN-USASP2013043700

PATIENT
  Age: 63 Year
  Sex: Female
  Weight: 77.1 kg

DRUGS (13)
  1. ENBREL [Suspect]
     Indication: RHEUMATOID ARTHRITIS
     Dosage: 50 MG, QWK
     Route: 058
     Dates: start: 20130525
  2. ENBREL [Suspect]
     Dosage: UNK
  3. METHOTREXATE [Concomitant]
     Dosage: 20 MG, UNK
  4. HYDROXYCHLOROQUINE [Concomitant]
     Dosage: 200 MG, UNK
  5. LEVOTHYROXIN [Concomitant]
     Dosage: 200 MUG, UNK
  6. GLUCOSAMINE + CHONDROITIN          /01430901/ [Concomitant]
     Dosage: 500-400
  7. FISH OIL [Concomitant]
     Dosage: UNK
  8. TURMERIC                           /01079602/ [Concomitant]
     Dosage: 450 MG, UNK
  9. CRANBERRY                          /01512301/ [Concomitant]
     Dosage: UNK
  10. MAGNESIUM [Concomitant]
     Dosage: 300 MG, UNK
  11. FOLIC ACID [Concomitant]
     Dosage: UNK
  12. VITAMIN C                          /00008001/ [Concomitant]
     Dosage: 500 MG, UNK
  13. VITAMIN D                          /00107901/ [Concomitant]
     Dosage: 400 UNIT, UNK

REACTIONS (5)
  - Injection site reaction [Not Recovered/Not Resolved]
  - Injection site pruritus [Not Recovered/Not Resolved]
  - Injection site erythema [Not Recovered/Not Resolved]
  - Injection site swelling [Not Recovered/Not Resolved]
  - Injection site pain [Not Recovered/Not Resolved]
